FAERS Safety Report 4866356-0 (Version None)
Quarter: 2005Q4

REPORT INFORMATION
  Report Type: 
  Country: None (occurrence: None)
  Receive Date: 20051227
  Receipt Date: 20051116
  Transmission Date: 20060501
  Serious: Yes (Life-Threatening, Hospitalization)
  Sender: FDA-Public Use
  Company Number: FR-AVENTIS-200513785FR

PATIENT
  Age: 69 Year
  Sex: Male

DRUGS (6)
  1. AMAREL [Suspect]
     Indication: DIABETES MELLITUS
     Route: 048
     Dates: end: 20050210
  2. PLAVIX [Suspect]
     Indication: ESSENTIAL HYPERTENSION
     Route: 048
     Dates: end: 20050210
  3. SELOKEN [Suspect]
     Indication: ESSENTIAL HYPERTENSION
     Route: 048
  4. NEXIUM [Suspect]
     Indication: OESOPHAGITIS
     Route: 048
  5. NICARDIPINE HCL [Suspect]
     Route: 048
  6. NITRIDERM TTS 10 MG/24 H [Suspect]
     Indication: ACUTE MYOCARDIAL INFARCTION
     Route: 062

REACTIONS (7)
  - ANAEMIA [None]
  - DUODENITIS [None]
  - GASTROINTESTINAL HAEMORRHAGE [None]
  - HAEMATEMESIS [None]
  - MUCORMYCOSIS [None]
  - NORMOCHROMIC NORMOCYTIC ANAEMIA [None]
  - OESOPHAGITIS [None]
